FAERS Safety Report 21960136 (Version 2)
Quarter: 2023Q2

REPORT INFORMATION
  Report Type: Report from Study
  Country: US (occurrence: US)
  Receive Date: 20230207
  Receipt Date: 20230615
  Transmission Date: 20230721
  Serious: Yes (Other)
  Sender: FDA-Public Use
  Company Number: US-ETON PHARMACEUTICALS, INC-2023ETO000027

PATIENT

DRUGS (1)
  1. ALKINDI SPRINKLE [Suspect]
     Active Substance: HYDROCORTISONE
     Indication: Adrenogenital syndrome
     Dosage: TWO 0.5 MILLIGRAM, THREE TIMES IN A DAY
     Route: 048
     Dates: start: 20221102

REACTIONS (1)
  - Wrist fracture [Unknown]

NARRATIVE: CASE EVENT DATE: 20230101
